FAERS Safety Report 9684689 (Version 1)
Quarter: 2013Q4

REPORT INFORMATION
  Report Type: Spontaneous
  Country: IT (occurrence: IT)
  Receive Date: 20131112
  Receipt Date: 20131112
  Transmission Date: 20140711
  Serious: Yes (Hospitalization)
  Sender: FDA-Public Use
  Company Number: IT-MYLANLABS-2013S1024603

PATIENT
  Age: 55 Year
  Sex: Female
  Weight: 93 kg

DRUGS (7)
  1. FUROSEMIDE [Suspect]
     Indication: WEIGHT LOSS DIET
     Dates: start: 20121010, end: 20131010
  2. FUROSEMIDE [Suspect]
     Indication: OFF LABEL USE
     Dates: start: 20121010, end: 20131010
  3. TOLEP [Concomitant]
     Indication: PRODUCT USED FOR UNKNOWN INDICATION
     Dosage: 600 MG TABLETS
  4. EN [Concomitant]
     Indication: PRODUCT USED FOR UNKNOWN INDICATION
     Dosage: 1 MG/ML ORAL DROPS SOLUTION
  5. XERISTAR [Concomitant]
     Indication: PRODUCT USED FOR UNKNOWN INDICATION
  6. VERTISERC [Concomitant]
     Indication: PRODUCT USED FOR UNKNOWN INDICATION
  7. OMEPRAZEN /00661201/ [Concomitant]
     Indication: PRODUCT USED FOR UNKNOWN INDICATION

REACTIONS (5)
  - Hypochloraemia [Recovering/Resolving]
  - Hypokalaemia [Recovering/Resolving]
  - Off label use [Recovering/Resolving]
  - Drug abuse [Recovering/Resolving]
  - Weight loss diet [Recovering/Resolving]
